FAERS Safety Report 6816165-8 (Version None)
Quarter: 2010Q3

REPORT INFORMATION
  Report Type: 
  Country: None (occurrence: None)
  Receive Date: 20100702
  Receipt Date: 20100702
  Transmission Date: 20110219
  Serious: No
  Sender: FDA-Public Use
  Company Number: None

PATIENT
  Sex: Female
  Weight: 72.5755 kg

DRUGS (1)
  1. ORTHO TRI-CYCLEN LO [Suspect]
     Indication: CONTRACEPTION
     Dosage: 1 PILL ONCE A DAY/30 DAYS PO
     Route: 048

REACTIONS (6)
  - FEELING ABNORMAL [None]
  - INSOMNIA [None]
  - MOOD SWINGS [None]
  - PAIN [None]
  - PRODUCT SUBSTITUTION ISSUE [None]
  - RASH ERYTHEMATOUS [None]
